FAERS Safety Report 5223714-2 (Version None)
Quarter: 2007Q1

REPORT INFORMATION
  Report Type: 
  Country: None (occurrence: None)
  Receive Date: 20070126
  Receipt Date: 20070119
  Transmission Date: 20070707
  Serious: Yes (Hospitalization)
  Sender: FDA-Public Use
  Company Number: 2007-00248

PATIENT
  Age: 44 Year
  Sex: Female

DRUGS (4)
  1. METOCLOPRAMIDE [Suspect]
     Indication: NAUSEA
     Dosage: 10 MG, UNKNOWN, INTRAVENOUS
     Route: 042
  2. METOCLOPRAMIDE [Suspect]
     Indication: VOMITING
     Dosage: 10 MG, UNKNOWN, INTRAVENOUS
     Route: 042
  3. BUTYLSCOPOLAMIN(HYOSCINE BUTYLBROMIDE) [Suspect]
     Dosage: 20 MG, UNK, UNK
  4. TAL VOSILEN (PARACETAMOL) [Concomitant]

REACTIONS (1)
  - ANAPHYLACTIC REACTION [None]
